FAERS Safety Report 15534017 (Version 2)
Quarter: 2018Q4

REPORT INFORMATION
  Report Type: Report from Study
  Country: HU (occurrence: HU)
  Receive Date: 20181019
  Receipt Date: 20181120
  Transmission Date: 20190205
  Serious: Yes (Hospitalization, Other)
  Sender: FDA-Public Use
  Company Number: HU-BAYER-2018-190648

PATIENT
  Sex: Female
  Weight: 72 kg

DRUGS (1)
  1. STIVARGA [Suspect]
     Active Substance: REGORAFENIB
     Indication: COLORECTAL CANCER METASTATIC
     Dosage: DAILY DOSE 160 MG
     Route: 048
     Dates: start: 20180913, end: 20181010

REACTIONS (7)
  - Agranulocytosis [None]
  - Fatigue [Recovering/Resolving]
  - Hypokalaemia [Recovering/Resolving]
  - Hypoalbuminaemia [Recovering/Resolving]
  - Hypocalcaemia [Recovering/Resolving]
  - Anaemia [None]
  - Hyponatraemia [Recovering/Resolving]
